FAERS Safety Report 17456904 (Version 2)
Quarter: 2020Q1

REPORT INFORMATION
  Report Type: Spontaneous
  Country: US (occurrence: US)
  Receive Date: 20200225
  Receipt Date: 20200309
  Transmission Date: 20200409
  Serious: No
  Sender: FDA-Public Use
  Company Number: US-PFIZER INC-2020081235

PATIENT

DRUGS (1)
  1. DOCETAXEL. [Suspect]
     Active Substance: DOCETAXEL
     Dosage: UNK
     Dates: start: 20170303, end: 20170621

REACTIONS (2)
  - Alopecia [Not Recovered/Not Resolved]
  - Hair injury [Not Recovered/Not Resolved]
